FAERS Safety Report 8781280 (Version 2)
Quarter: 2012Q4

REPORT INFORMATION
  Report Type: 
  Country: US (occurrence: US)
  Receive Date: 20120913
  Receipt Date: 20120914
  Transmission Date: 20130627
  Serious: Yes (Disabling, Other)
  Sender: FDA-Public Use
  Company Number: US-PFIZER INC-2012223691

PATIENT
  Age: 59 Year
  Sex: Female
  Weight: 99.77 kg

DRUGS (10)
  1. LYRICA [Suspect]
     Indication: PAIN IN EXTREMITY
     Dosage: UNK, 2x/day
     Route: 048
     Dates: end: 2010
  2. LYRICA [Suspect]
     Dosage: 200 mg, 3x/day
     Route: 048
     Dates: start: 2010
  3. LYRICA [Suspect]
     Dosage: UNK
     Route: 048
  4. TRAMADOL [Concomitant]
     Dosage: 50 mg, 4x/day
  5. OMEPRAZOLE [Concomitant]
     Indication: GASTROOESOPHAGEAL REFLUX DISEASE
     Dosage: 40 mg, 1x/day
  6. GEMFIBROZIL [Concomitant]
     Dosage: 600 mg, 2x/day
  7. LISINOPRIL [Concomitant]
     Indication: HYPERTENSION
     Dosage: 10 mg, 1x/day
  8. ALPRAZOLAM [Concomitant]
     Dosage: 1 mg, 1x/day
  9. TOPIRAMATE [Concomitant]
     Dosage: 50 mg, 1x/day
  10. TRAZODONE [Concomitant]
     Dosage: 50 mg, 1x/day

REACTIONS (5)
  - Limb discomfort [Not Recovered/Not Resolved]
  - Diabetes mellitus [Unknown]
  - Drug ineffective [Unknown]
  - Pain [Not Recovered/Not Resolved]
  - Blood glucose decreased [Unknown]
